FAERS Safety Report 10210862 (Version 3)
Quarter: 2014Q2

REPORT INFORMATION
  Report Type: Report from Study
  Country: CA (occurrence: CA)
  Receive Date: 20140602
  Receipt Date: 20140616
  Transmission Date: 20141212
  Serious: Yes (Death)
  Sender: FDA-Public Use
  Company Number: CA-ABBVIE-14K-028-1243398-00

PATIENT
  Sex: Male

DRUGS (11)
  1. LUPRON DEPOT [Suspect]
     Indication: PROSTATE CANCER
     Route: 030
     Dates: start: 20121218
  2. METOPROLOL [Concomitant]
     Indication: HYPERTENSION
     Route: 048
     Dates: start: 1999
  3. ASA [Concomitant]
     Indication: CORONARY ARTERY DISEASE
     Route: 048
     Dates: start: 1999
  4. PRAVACHOL [Concomitant]
     Indication: BLOOD CHOLESTEROL INCREASED
     Route: 048
     Dates: start: 1999
  5. NORVASC [Concomitant]
     Indication: HYPERTENSION
     Route: 048
     Dates: start: 1999
  6. ALTACE [Concomitant]
     Indication: HYPERTENSION
     Route: 048
     Dates: start: 1999
  7. ATIVAN [Concomitant]
     Indication: PROPHYLAXIS
     Route: 048
     Dates: start: 1999
  8. ATIVAN [Concomitant]
     Indication: INSOMNIA
  9. HYDROCHLOROTHIAZIDE [Concomitant]
     Indication: HYPERTENSION
     Route: 048
     Dates: start: 1999
  10. NG PATCH [Concomitant]
     Indication: CORONARY ARTERY DISEASE
     Route: 061
     Dates: start: 1999
  11. NG SPRAY [Concomitant]
     Indication: CORONARY ARTERY DISEASE
     Route: 060
     Dates: start: 1999

REACTIONS (1)
  - Unresponsive to stimuli [Fatal]
